FAERS Safety Report 14482989 (Version 2)
Quarter: 2018Q1

REPORT INFORMATION
  Report Type: Report from Study
  Country: None (occurrence: KR)
  Receive Date: 20180203
  Receipt Date: 20180228
  Transmission Date: 20180509
  Serious: Yes (Death, Hospitalization)
  Sender: FDA-Public Use
  Company Number: KR-ABBVIE-18K-090-2245257-00

PATIENT
  Age: 59 Year
  Sex: Female
  Weight: 54 kg

DRUGS (8)
  1. HUMIRA [Suspect]
     Active Substance: ADALIMUMAB
     Indication: BEHCET^S SYNDROME
     Route: 058
     Dates: start: 20161231, end: 20180117
  2. RAMNOS [Concomitant]
     Indication: BEHCET^S SYNDROME
     Route: 048
  3. ACETAMINOPHEN. [Concomitant]
     Active Substance: ACETAMINOPHEN
     Indication: BEHCET^S SYNDROME
     Route: 048
     Dates: start: 20170121
  4. BEECOM [Concomitant]
     Indication: BEHCET^S SYNDROME
     Route: 048
  5. ASACOL [Concomitant]
     Active Substance: MESALAMINE
     Indication: BEHCET^S SYNDROME
     Route: 048
     Dates: start: 201701
  6. K-CONTIN [Concomitant]
     Indication: PRODUCT USED FOR UNKNOWN INDICATION
     Dates: start: 20170123
  7. KEPPRA [Concomitant]
     Active Substance: LEVETIRACETAM
     Indication: BEHCET^S SYNDROME
     Route: 048
     Dates: start: 20170121
  8. POLYBUTINE [Concomitant]
     Indication: BEHCET^S SYNDROME

REACTIONS (1)
  - Subarachnoid haemorrhage [Fatal]

NARRATIVE: CASE EVENT DATE: 20180121
